FAERS Safety Report 11525417 (Version 2)
Quarter: 2015Q3

REPORT INFORMATION
  Report Type: Spontaneous
  Country: GB (occurrence: GB)
  Receive Date: 20150918
  Receipt Date: 20150930
  Transmission Date: 20151125
  Serious: Yes (Death, Other)
  Sender: FDA-Public Use
  Company Number: GB-TEVA-592908ACC

PATIENT
  Age: 77 Year
  Sex: Female

DRUGS (20)
  1. TAZOCIN [Concomitant]
     Active Substance: PIPERACILLIN SODIUM\TAZOBACTAM SODIUM
  2. ACICLOVIR [Concomitant]
     Active Substance: ACYCLOVIR
  3. MYCOPHENOLATE MOFETIL. [Suspect]
     Active Substance: MYCOPHENOLATE MOFETIL
     Indication: SARCOIDOSIS
     Dosage: 1.5 GRAM DAILY;
     Route: 048
     Dates: start: 20120418, end: 20150827
  4. GELCLAIR [Concomitant]
  5. NYSTATIN. [Concomitant]
     Active Substance: NYSTATIN
  6. PREDNISOLONE. [Concomitant]
     Active Substance: PREDNISOLONE
  7. SALBUTAMOL [Concomitant]
     Active Substance: ALBUTEROL
  8. CHLORAMPHENICOL [Concomitant]
     Active Substance: CHLORAMPHENICOL
  9. LANSOPRAZOLE. [Concomitant]
     Active Substance: LANSOPRAZOLE
  10. ALENDRONATE [Concomitant]
     Active Substance: ALENDRONATE SODIUM
  11. FLUCONAZOLE. [Concomitant]
     Active Substance: FLUCONAZOLE
  12. ASPIRIN. [Concomitant]
     Active Substance: ASPIRIN
  13. DERMOL [Concomitant]
     Active Substance: BENZALKONIUM CHLORIDE\CHLORHEXIDINE HYDROCHLORIDE\ISOPROPYL MYRISTATE\PARAFFIN
  14. FLUCLOXACILLIN [Concomitant]
     Active Substance: FLUCLOXACILLIN
  15. IPRATROPIUM [Concomitant]
     Active Substance: IPRATROPIUM
  16. LEVOTHYROXINE. [Concomitant]
     Active Substance: LEVOTHYROXINE
  17. FUCIDIN [Concomitant]
     Active Substance: FUSIDIC ACID
  18. ADCAL-D3 [Concomitant]
     Active Substance: CALCIUM CARBONATE\CHOLECALCIFEROL
  19. METFORMIN [Concomitant]
     Active Substance: METFORMIN HYDROCHLORIDE
  20. SPIRONOLACTONE. [Concomitant]
     Active Substance: SPIRONOLACTONE

REACTIONS (3)
  - Varicella zoster virus infection [Fatal]
  - Multi-organ failure [Not Recovered/Not Resolved]
  - Immunosuppression [Not Recovered/Not Resolved]

NARRATIVE: CASE EVENT DATE: 20150824
